FAERS Safety Report 11928121 (Version 1)
Quarter: 2016Q1

REPORT INFORMATION
  Report Type: Report from Study
  Country: US (occurrence: US)
  Receive Date: 20160119
  Receipt Date: 20160119
  Transmission Date: 20160526
  Serious: Yes (Hospitalization, Other)
  Sender: FDA-Public Use
  Company Number: US-BIOGEN-2016BI00175148

PATIENT
  Age: 68 Year
  Sex: Male

DRUGS (1)
  1. TYSABRI [Suspect]
     Active Substance: NATALIZUMAB
     Indication: MULTIPLE SCLEROSIS
     Route: 042
     Dates: start: 20100112

REACTIONS (2)
  - Eye infection [Recovered/Resolved]
  - Retinal detachment [Recovered/Resolved]

NARRATIVE: CASE EVENT DATE: 20160104
